FAERS Safety Report 13134983 (Version 6)
Quarter: 2017Q3

REPORT INFORMATION
  Report Type: Report from Study
  Country: CN (occurrence: CN)
  Receive Date: 20170120
  Receipt Date: 20170913
  Transmission Date: 20171127
  Serious: Yes (Other)
  Sender: FDA-Public Use
  Company Number: PHHY2017CN005197

PATIENT
  Age: 32 Year
  Sex: Male

DRUGS (143)
  1. TACROLIMUS. [Suspect]
     Active Substance: TACROLIMUS
     Dosage: 4.5 MG, QD
     Route: 065
     Dates: start: 20160918, end: 20161026
  2. TACROLIMUS. [Suspect]
     Active Substance: TACROLIMUS
     Dosage: 3.5 MG, QD
     Route: 065
     Dates: start: 20161027
  3. SODIUM CHLORIDE. [Concomitant]
     Active Substance: SODIUM CHLORIDE
     Dosage: 400 ML, PRN
     Route: 042
     Dates: start: 20160907, end: 20160907
  4. GLUCOSE [Concomitant]
     Active Substance: DEXTROSE
     Indication: PRODUCT USED FOR UNKNOWN INDICATION
     Dosage: 250 ML, PRN
     Route: 042
     Dates: start: 20160810, end: 20160811
  5. OMEPRAZOLE. [Concomitant]
     Active Substance: OMEPRAZOLE
     Indication: INFECTION PROPHYLAXIS
     Dosage: 1000 MG, BID
     Route: 042
     Dates: start: 20160817, end: 20160827
  6. CRAVIT [Concomitant]
     Active Substance: LEVOFLOXACIN
     Dosage: 100 ML, QD
     Route: 042
     Dates: start: 20160814, end: 20160817
  7. BUDESONIDE. [Concomitant]
     Active Substance: BUDESONIDE
     Indication: PRODUCTIVE COUGH
     Dosage: 1 VIAL, PRN
     Route: 055
     Dates: start: 20160810, end: 20160810
  8. CEFOPERAZONA/SULBACTAM [Concomitant]
     Active Substance: CEFOPERAZONE SODIUM\SULBACTAM SODIUM
     Dosage: 1500 MG, BID
     Route: 042
     Dates: start: 20160810, end: 20160817
  9. RECOMBINANT HUMAN ERYTHROPOIETIN [Concomitant]
     Active Substance: ERYTHROPOIETIN
     Dosage: 9999 IU, PRN
     Route: 042
     Dates: start: 20160925, end: 20160925
  10. RECOMBINANT HUMAN ERYTHROPOIETIN [Concomitant]
     Active Substance: ERYTHROPOIETIN
     Dosage: 9999 IU, PRN
     Route: 042
     Dates: start: 20160928, end: 20160928
  11. DOXOFYLLINE [Concomitant]
     Active Substance: DOXOFYLLINE
     Indication: COUGH
     Dosage: 200 MG, BID
     Route: 042
     Dates: start: 20160810, end: 20160826
  12. FUROSEMIDE. [Concomitant]
     Active Substance: FUROSEMIDE
     Dosage: 80 MG, PRN
     Route: 042
     Dates: start: 20160923, end: 20160923
  13. MYFORTIC [Suspect]
     Active Substance: MYCOPHENOLATE SODIUM
     Indication: IMMUNOSUPPRESSANT DRUG THERAPY
     Dosage: 1260 MG, QD
     Route: 065
     Dates: start: 20160811, end: 20160823
  14. MYFORTIC [Suspect]
     Active Substance: MYCOPHENOLATE SODIUM
     Dosage: 1080 MG, QD
     Route: 065
     Dates: start: 20160829, end: 20161026
  15. CICLOSPORIN [Suspect]
     Active Substance: CYCLOSPORINE
     Indication: IMMUNOSUPPRESSANT DRUG THERAPY
     Dosage: 250 MG, QD
     Route: 065
     Dates: start: 20160827, end: 20160909
  16. PREDNISONE. [Suspect]
     Active Substance: PREDNISONE
     Dosage: 15 MG, QD
     Route: 065
     Dates: start: 20160928
  17. GLUCOSE [Concomitant]
     Active Substance: DEXTROSE
     Indication: BLOOD POTASSIUM INCREASED
     Dosage: 250 ML, PRN
     Route: 042
     Dates: start: 20160810, end: 20160810
  18. ALBUMIN [Concomitant]
     Active Substance: ALBUMIN HUMAN
     Dosage: 10 G, PRN
     Route: 042
     Dates: start: 20160824, end: 20160824
  19. ALBUMIN [Concomitant]
     Active Substance: ALBUMIN HUMAN
     Dosage: 10 G, PRN
     Route: 042
     Dates: start: 20160906, end: 20160906
  20. BETALOC [Concomitant]
     Active Substance: METOPROLOL TARTRATE
     Indication: BLOOD PRESSURE INCREASED
     Dosage: 25 MG, PRN
     Route: 042
     Dates: start: 20160812, end: 20160812
  21. HEPARIN SODIUM. [Concomitant]
     Active Substance: HEPARIN SODIUM
     Indication: PRODUCT USED FOR UNKNOWN INDICATION
     Dosage: 6250 IU, QD
     Route: 042
     Dates: start: 20160809, end: 20160902
  22. ALPROSTADIL. [Concomitant]
     Active Substance: ALPROSTADIL
     Dosage: 10 UG, BID
     Route: 042
     Dates: start: 20160810, end: 20160912
  23. POTASSIUM CHLORIDE. [Concomitant]
     Active Substance: POTASSIUM CHLORIDE
     Dosage: 40 MG, TID
     Route: 048
     Dates: start: 20160831, end: 20160908
  24. DILTIAZEM HYDROCHLORIDE. [Concomitant]
     Active Substance: DILTIAZEM HYDROCHLORIDE
     Indication: PRODUCT USED FOR UNKNOWN INDICATION
     Dosage: 30 MG, BID
     Route: 042
     Dates: start: 20160811, end: 20160822
  25. MOSAPRIDE [Concomitant]
     Active Substance: MOSAPRIDE
     Indication: PRODUCT USED FOR UNKNOWN INDICATION
     Dosage: 5 MG, TID
     Route: 048
     Dates: start: 20160813, end: 20160818
  26. RECOMBINANT HUMAN ERYTHROPOIETIN [Concomitant]
     Active Substance: ERYTHROPOIETIN
     Dosage: 9999 IU, PRN
     Route: 042
     Dates: start: 20160829, end: 20160829
  27. RECOMBINANT HUMAN ERYTHROPOIETIN [Concomitant]
     Active Substance: ERYTHROPOIETIN
     Dosage: 9999 IU, PRN
     Route: 042
     Dates: start: 20160911, end: 20160911
  28. MUCOSOLVAN [Concomitant]
     Active Substance: AMBROXOL HYDROCHLORIDE
     Dosage: 15 MG, PRN
     Route: 055
     Dates: start: 20160810, end: 20160810
  29. FUROSEMIDE. [Concomitant]
     Active Substance: FUROSEMIDE
     Dosage: 80 MG, PRN
     Route: 042
     Dates: start: 20160905, end: 20160905
  30. FUROSEMIDE. [Concomitant]
     Active Substance: FUROSEMIDE
     Dosage: 240 MG, PRN
     Route: 042
     Dates: start: 20160914, end: 20160916
  31. FUROSEMIDE. [Concomitant]
     Active Substance: FUROSEMIDE
     Dosage: 80 MG, PRN
     Route: 042
     Dates: start: 20160917, end: 20160917
  32. FUROSEMIDE. [Concomitant]
     Active Substance: FUROSEMIDE
     Dosage: 40 MG, PRN
     Route: 042
     Dates: start: 20160926, end: 20160926
  33. MYFORTIC [Suspect]
     Active Substance: MYCOPHENOLATE SODIUM
     Dosage: 720 MG, QD
     Route: 065
     Dates: start: 20161027
  34. METHYLPREDNISOLONE. [Suspect]
     Active Substance: METHYLPREDNISOLONE
     Dosage: 400 MG, QD
     Route: 065
     Dates: start: 20160812, end: 20160812
  35. ALBUMIN [Concomitant]
     Active Substance: ALBUMIN HUMAN
     Dosage: 10 G, PRN
     Route: 042
     Dates: start: 20160829, end: 20160829
  36. CRAVIT [Concomitant]
     Active Substance: LEVOFLOXACIN
     Dosage: 100 ML, PRN
     Route: 042
     Dates: start: 20160813, end: 20160814
  37. ESOMEPRAZOLE MAGNESIUM. [Concomitant]
     Active Substance: ESOMEPRAZOLE MAGNESIUM
     Indication: GASTRITIS PROPHYLAXIS
     Dosage: 20 MG, QD
     Route: 048
     Dates: start: 20160911, end: 20160929
  38. BUDESONIDE. [Concomitant]
     Active Substance: BUDESONIDE
     Dosage: 1 VIAL, TID
     Route: 055
     Dates: start: 20160810, end: 20160906
  39. CEFOPERAZONA/SULBACTAM [Concomitant]
     Active Substance: CEFOPERAZONE SODIUM\SULBACTAM SODIUM
     Indication: INFECTION PROPHYLAXIS
     Dosage: 1500 MG, PRN
     Route: 042
     Dates: start: 20160810, end: 20160810
  40. CEFACLOR. [Concomitant]
     Active Substance: CEFACLOR
     Indication: PRODUCT USED FOR UNKNOWN INDICATION
     Dosage: 250 MG, TID
     Route: 048
     Dates: start: 20160908, end: 20160915
  41. DOPAMINE HYDROCHLORIDE. [Concomitant]
     Active Substance: DOPAMINE HYDROCHLORIDE
     Dosage: 10 MG, PRN
     Route: 042
     Dates: start: 20160810, end: 20160810
  42. MOXIFLOXACIN HYDROCHLORIDE. [Concomitant]
     Active Substance: MOXIFLOXACIN HYDROCHLORIDE
     Indication: INFECTION PROPHYLAXIS
     Dosage: 400 MG, QD
     Route: 042
     Dates: start: 20160817, end: 20160827
  43. MOXIFLOXACIN HYDROCHLORIDE. [Concomitant]
     Active Substance: MOXIFLOXACIN HYDROCHLORIDE
     Dosage: 400 MG, QD
     Route: 042
     Dates: start: 20160830, end: 20160831
  44. INSULIN [Concomitant]
     Active Substance: INSULIN NOS
     Indication: BLOOD POTASSIUM INCREASED
     Dosage: 4 IU, PRN
     Route: 042
     Dates: start: 20160810, end: 20160811
  45. FUROSEMIDE. [Concomitant]
     Active Substance: FUROSEMIDE
     Indication: POLYURIA
     Dosage: 40 MG, PRN
     Route: 042
     Dates: start: 20160809, end: 20160809
  46. FUROSEMIDE. [Concomitant]
     Active Substance: FUROSEMIDE
     Dosage: 120 MG, PRN
     Route: 042
     Dates: start: 20160906, end: 20160906
  47. FUROSEMIDE. [Concomitant]
     Active Substance: FUROSEMIDE
     Dosage: 40 MG, PRN
     Route: 042
     Dates: start: 20160919, end: 20160919
  48. FUROSEMIDE. [Concomitant]
     Active Substance: FUROSEMIDE
     Dosage: 80 MG, PRN
     Route: 042
     Dates: start: 20160928, end: 20160928
  49. BASILIXIMAB [Suspect]
     Active Substance: BASILIXIMAB
     Indication: RENAL TRANSPLANT
     Dosage: 20 MG, QD
     Route: 065
     Dates: start: 20160809, end: 20160809
  50. TACROLIMUS. [Suspect]
     Active Substance: TACROLIMUS
     Indication: IMMUNOSUPPRESSANT DRUG THERAPY
     Dosage: 6 MG, QD
     Route: 065
     Dates: start: 20160810, end: 20160823
  51. ALBUMIN [Concomitant]
     Active Substance: ALBUMIN HUMAN
     Indication: PRODUCT USED FOR UNKNOWN INDICATION
     Dosage: 10 G, PRN
     Route: 042
     Dates: start: 20160813, end: 20160813
  52. ALBUMIN [Concomitant]
     Active Substance: ALBUMIN HUMAN
     Dosage: 10 G, PRN
     Route: 042
     Dates: start: 20160819, end: 20160819
  53. ALBUMIN [Concomitant]
     Active Substance: ALBUMIN HUMAN
     Dosage: 10 G, PRN
     Route: 042
     Dates: start: 20160905, end: 20160905
  54. BICYCLOL [Concomitant]
     Active Substance: BICYCLOL
     Indication: TRANSAMINASES INCREASED
     Dosage: 50 MG, TID
     Route: 048
     Dates: start: 20160817, end: 20160927
  55. ADALAT [Concomitant]
     Active Substance: NIFEDIPINE
     Indication: BLOOD PRESSURE INCREASED
     Dosage: 30 MG, PRN
     Route: 048
     Dates: start: 20160818, end: 20160818
  56. ADALAT [Concomitant]
     Active Substance: NIFEDIPINE
     Dosage: 30 MG, BID
     Route: 048
     Dates: start: 20160818, end: 20160830
  57. DIISOPROPYLAMINE DICHLOROACETATE [Concomitant]
     Indication: PROPHYLAXIS
     Dosage: 80 MG, PRN
     Route: 042
     Dates: start: 20160810, end: 20160810
  58. LIPITOR [Concomitant]
     Active Substance: ATORVASTATIN CALCIUM
     Indication: LIPIDS INCREASED
     Dosage: 20 MG, QD
     Route: 048
     Dates: start: 20160914, end: 20160929
  59. POTASSIUM CHLORIDE. [Concomitant]
     Active Substance: POTASSIUM CHLORIDE
     Dosage: 1000 MG, PRN
     Route: 048
     Dates: start: 20160906, end: 20160906
  60. PANTOPRAZOLE [Concomitant]
     Active Substance: PANTOPRAZOLE
     Indication: GASTRITIS PROPHYLAXIS
     Dosage: 40 MG, PRN
     Route: 042
     Dates: start: 20160901, end: 20160902
  61. HUMAN ALBUMIN [Concomitant]
     Active Substance: ALBUMIN HUMAN
     Dosage: 10 G, PRN
     Route: 042
     Dates: start: 20160812, end: 20160812
  62. ULINASTATIN [Concomitant]
     Active Substance: ULINASTATIN
     Indication: PROPHYLAXIS
     Dosage: 100000 IU, PRN
     Route: 042
     Dates: start: 20160810, end: 20160810
  63. DOPAMINE HYDROCHLORIDE. [Concomitant]
     Active Substance: DOPAMINE HYDROCHLORIDE
     Indication: BLOOD PRESSURE ABNORMAL
     Dosage: 160 MG, PRN
     Route: 042
     Dates: start: 20160810, end: 20160810
  64. DOPAMINE HYDROCHLORIDE. [Concomitant]
     Active Substance: DOPAMINE HYDROCHLORIDE
     Dosage: 10 MG, PRN
     Route: 042
     Dates: start: 20160906, end: 20160906
  65. RECOMBINANT HUMAN ERYTHROPOIETIN [Concomitant]
     Active Substance: ERYTHROPOIETIN
     Dosage: 9999 IU, PRN
     Route: 042
     Dates: start: 20160819, end: 20160819
  66. RECOMBINANT HUMAN ERYTHROPOIETIN [Concomitant]
     Active Substance: ERYTHROPOIETIN
     Dosage: 9999 IU, PRN
     Route: 042
     Dates: start: 20160903, end: 20160903
  67. RECOMBINANT HUMAN ERYTHROPOIETIN [Concomitant]
     Active Substance: ERYTHROPOIETIN
     Dosage: 9999 IU, PRN
     Route: 042
     Dates: start: 20160921, end: 20160921
  68. DOXOFYLLINE [Concomitant]
     Active Substance: DOXOFYLLINE
     Indication: WHEEZING
     Dosage: 200 MG, PRN
     Route: 042
     Dates: start: 20160809, end: 20160809
  69. LEVOCARNITINE. [Concomitant]
     Active Substance: LEVOCARNITINE
     Dosage: 1 VIAL, PRN
     Route: 042
     Dates: start: 20160903, end: 20160903
  70. MUCOSOLVAN [Concomitant]
     Active Substance: AMBROXOL HYDROCHLORIDE
     Indication: PRODUCTIVE COUGH
     Dosage: 30 MG, PRN
     Route: 042
     Dates: start: 20160809, end: 20160809
  71. FUROSEMIDE. [Concomitant]
     Active Substance: FUROSEMIDE
     Dosage: 40 MG, QD
     Route: 042
     Dates: start: 20160810, end: 20160811
  72. FUROSEMIDE. [Concomitant]
     Active Substance: FUROSEMIDE
     Dosage: 40 MG, PRN
     Route: 048
     Dates: start: 20160817, end: 20160819
  73. FUROSEMIDE. [Concomitant]
     Active Substance: FUROSEMIDE
     Dosage: 40 MG, PRN
     Route: 042
     Dates: start: 20160912, end: 20160912
  74. FUROSEMIDE. [Concomitant]
     Active Substance: FUROSEMIDE
     Dosage: 40 MG, PRN
     Route: 042
     Dates: start: 20160922, end: 20160922
  75. FUROSEMIDE. [Concomitant]
     Active Substance: FUROSEMIDE
     Dosage: 80 MG, PRN
     Route: 042
     Dates: start: 20160925, end: 20160925
  76. BASILIXIMAB [Suspect]
     Active Substance: BASILIXIMAB
     Indication: IMMUNOSUPPRESSANT DRUG THERAPY
     Dosage: 20 MG, QD
     Route: 065
     Dates: start: 20160813, end: 20160813
  77. CICLOSPORIN [Suspect]
     Active Substance: CYCLOSPORINE
     Indication: DELAYED GRAFT FUNCTION
     Dosage: 125 MG, QD
     Route: 065
     Dates: start: 20160826, end: 20160826
  78. OMEPRAZOLE SODIUM [Concomitant]
     Active Substance: OMEPRAZOLE SODIUM
     Dosage: 40 MG, BID
     Route: 042
     Dates: start: 20160810, end: 20160812
  79. OMEPRAZOLE SODIUM [Concomitant]
     Active Substance: OMEPRAZOLE SODIUM
     Dosage: 40 MG, QD
     Route: 042
     Dates: start: 20160816, end: 20160825
  80. ALBUMIN [Concomitant]
     Active Substance: ALBUMIN HUMAN
     Dosage: 10 G, PRN
     Route: 042
     Dates: start: 20160822, end: 20160822
  81. BICYCLOL [Concomitant]
     Active Substance: BICYCLOL
     Dosage: 20 MG, TID
     Route: 048
     Dates: start: 20160929
  82. DIISOPROPYLAMINE DICHLOROACETATE [Concomitant]
     Dosage: 80 MG, QD
     Route: 042
     Dates: start: 20160810, end: 20160817
  83. ALPROSTADIL. [Concomitant]
     Active Substance: ALPROSTADIL
     Dosage: 10 UG, QD
     Route: 042
     Dates: start: 20160912, end: 20160929
  84. IPRATROPIUM BROMIDE. [Concomitant]
     Active Substance: IPRATROPIUM BROMIDE
     Dosage: 1 VIAL, TID
     Route: 055
     Dates: start: 20160810, end: 20160906
  85. LANSOPRAZOLE. [Concomitant]
     Active Substance: LANSOPRAZOLE
     Indication: GASTRITIS PROPHYLAXIS
     Dosage: 30 MG, QD
     Route: 048
     Dates: start: 20160825, end: 20160901
  86. LIPITOR [Concomitant]
     Active Substance: ATORVASTATIN CALCIUM
     Dosage: 10 MG, QD
     Route: 048
     Dates: start: 20160929
  87. SODIUM CHLORIDE. [Concomitant]
     Active Substance: SODIUM CHLORIDE
     Indication: PRODUCT USED FOR UNKNOWN INDICATION
     Dosage: 30 ML, PRN
     Route: 042
     Dates: start: 20160814, end: 20160814
  88. IRON SUCROSE [Concomitant]
     Active Substance: IRON SUCROSE
     Dosage: 10 G, PRN
     Route: 042
     Dates: start: 20160812, end: 20160813
  89. SODIUM BICARBONATE. [Concomitant]
     Active Substance: SODIUM BICARBONATE
     Indication: PRODUCT USED FOR UNKNOWN INDICATION
     Dosage: 125 ML, PRN
     Route: 042
     Dates: start: 20160810, end: 20160811
  90. PHOSPHOCREATINE SODIUM [Concomitant]
     Active Substance: PHOSPHOCREATINE SODIUM
     Dosage: 1 G, UNK
     Route: 042
     Dates: start: 20160810, end: 20160822
  91. DOPAMINE HYDROCHLORIDE. [Concomitant]
     Active Substance: DOPAMINE HYDROCHLORIDE
     Dosage: 10 MG, QD
     Route: 048
     Dates: start: 20160926, end: 20160929
  92. MOXIFLOXACIN HYDROCHLORIDE. [Concomitant]
     Active Substance: MOXIFLOXACIN HYDROCHLORIDE
     Dosage: 400 MG, QD
     Route: 042
     Dates: start: 20160831, end: 20160908
  93. LEVOCARNITINE. [Concomitant]
     Active Substance: LEVOCARNITINE
     Indication: CARDIAC DISORDER
     Dosage: 1 VIAL, PRN
     Route: 042
     Dates: start: 20160810, end: 20160810
  94. LEVOCARNITINE. [Concomitant]
     Active Substance: LEVOCARNITINE
     Dosage: 1 VIAL, QD
     Route: 042
     Dates: start: 20160810, end: 20160822
  95. MUCOSOLVAN [Concomitant]
     Active Substance: AMBROXOL HYDROCHLORIDE
     Dosage: 30 MG, QD
     Route: 042
     Dates: start: 20160810, end: 20160825
  96. FUROSEMIDE. [Concomitant]
     Active Substance: FUROSEMIDE
     Dosage: 40 MG, PRN
     Route: 042
     Dates: start: 20160902, end: 20160902
  97. MYFORTIC [Suspect]
     Active Substance: MYCOPHENOLATE SODIUM
     Indication: RENAL TRANSPLANT
     Dosage: 1440 MG, QD
     Route: 065
     Dates: start: 20160810, end: 20160810
  98. METHYLPREDNISOLONE. [Suspect]
     Active Substance: METHYLPREDNISOLONE
     Indication: IMMUNOSUPPRESSANT DRUG THERAPY
     Dosage: 500 MG, QD
     Route: 065
     Dates: start: 20160809, end: 20160811
  99. PREDNISONE. [Suspect]
     Active Substance: PREDNISONE
     Indication: IMMUNOSUPPRESSANT DRUG THERAPY
     Dosage: 20 MG, QD
     Route: 065
     Dates: start: 20160812, end: 20160827
  100. SODIUM CHLORIDE. [Concomitant]
     Active Substance: SODIUM CHLORIDE
     Indication: PRODUCT USED FOR UNKNOWN INDICATION
     Dosage: 50 ML, PRN
     Route: 042
     Dates: start: 20160812, end: 20160812
  101. OMEPRAZOLE SODIUM [Concomitant]
     Active Substance: OMEPRAZOLE SODIUM
     Indication: GASTRITIS PROPHYLAXIS
     Dosage: 40 MG, PRN
     Route: 042
     Dates: start: 20160809, end: 20160809
  102. ALBUMIN [Concomitant]
     Active Substance: ALBUMIN HUMAN
     Dosage: 10 G, PRN
     Route: 042
     Dates: start: 20160826, end: 20160826
  103. PHENOBARBITAL SODIUM. [Concomitant]
     Active Substance: PHENOBARBITAL SODIUM
     Indication: SEDATION
     Dosage: 100 MG, PRN
     Route: 030
     Dates: start: 20160809, end: 20160809
  104. ALPROSTADIL. [Concomitant]
     Active Substance: ALPROSTADIL
     Indication: PRODUCT USED FOR UNKNOWN INDICATION
     Dosage: 10 UG, PRN
     Route: 042
     Dates: start: 20160809, end: 20160810
  105. IPRATROPIUM BROMIDE. [Concomitant]
     Active Substance: IPRATROPIUM BROMIDE
     Indication: PRODUCTIVE COUGH
     Dosage: 1 VIAL, PRN
     Route: 055
     Dates: start: 20160810, end: 20160810
  106. CRAVIT [Concomitant]
     Active Substance: LEVOFLOXACIN
     Indication: INFECTION PROPHYLAXIS
     Dosage: 100 ML, PRN
     Route: 042
     Dates: start: 20160809, end: 20160809
  107. CLOPIDOGREL HYDROGEN SULFATE [Concomitant]
     Active Substance: CLOPIDOGREL BISULFATE
     Indication: THROMBOSIS
     Dosage: 50 MG, QD
     Route: 048
     Dates: start: 20160914, end: 20160929
  108. CLOPIDOGREL HYDROGEN SULFATE [Concomitant]
     Active Substance: CLOPIDOGREL BISULFATE
     Indication: PRODUCT USED FOR UNKNOWN INDICATION
     Dosage: 50 MG, QD
     Route: 048
     Dates: start: 20160929
  109. METOCLOPRAMIDE HYDROCHLORIDE. [Concomitant]
     Active Substance: METOCLOPRAMIDE HYDROCHLORIDE
     Indication: GASTRITIS PROPHYLAXIS
     Dosage: 20 MG, PRN
     Route: 042
     Dates: start: 20160813, end: 20160813
  110. RECOMBINANT HUMAN ERYTHROPOIETIN [Concomitant]
     Active Substance: ERYTHROPOIETIN
     Dosage: 9999 IU, PRN
     Route: 042
     Dates: start: 20160815, end: 20160815
  111. RECOMBINANT HUMAN ERYTHROPOIETIN [Concomitant]
     Active Substance: ERYTHROPOIETIN
     Dosage: 9999 IU, PRN
     Route: 042
     Dates: start: 20160824, end: 20160824
  112. MUCOSOLVAN [Concomitant]
     Active Substance: AMBROXOL HYDROCHLORIDE
     Dosage: 30 MG, PRN
     Route: 042
     Dates: start: 20160810, end: 20160810
  113. FUROSEMIDE. [Concomitant]
     Active Substance: FUROSEMIDE
     Dosage: 40 MG, PRN
     Route: 042
     Dates: start: 20160908, end: 20160910
  114. FUROSEMIDE. [Concomitant]
     Active Substance: FUROSEMIDE
     Dosage: 80 MG, PRN
     Route: 042
     Dates: start: 20160921, end: 20160921
  115. CICLOSPORIN [Suspect]
     Active Substance: CYCLOSPORINE
     Indication: RENAL TRANSPLANT
     Dosage: 250 MG, QD
     Route: 065
     Dates: start: 20160824, end: 20160825
  116. TACROLIMUS. [Suspect]
     Active Substance: TACROLIMUS
     Dosage: 5 MG, QD
     Route: 065
     Dates: start: 20160909, end: 20160917
  117. GLUTATHIONE [Concomitant]
     Active Substance: GLUTATHIONE
     Dosage: 1200 MG, QD
     Route: 042
     Dates: start: 20160810, end: 20160817
  118. OMEPRAZOLE SODIUM [Concomitant]
     Active Substance: OMEPRAZOLE SODIUM
     Dosage: 40 MG, PRN
     Route: 042
     Dates: start: 20160812, end: 20160812
  119. PANTOPRAZOLE [Concomitant]
     Active Substance: PANTOPRAZOLE
     Dosage: 40 MG, QD
     Route: 048
     Dates: start: 20160901, end: 20160911
  120. PHOSPHOCREATINE SODIUM [Concomitant]
     Active Substance: PHOSPHOCREATINE SODIUM
     Indication: CARDIAC DISORDER
     Dosage: 1 VIAL, PRN
     Route: 042
     Dates: start: 20160810, end: 20160810
  121. DOPAMINE HYDROCHLORIDE. [Concomitant]
     Active Substance: DOPAMINE HYDROCHLORIDE
     Indication: PRODUCT USED FOR UNKNOWN INDICATION
     Dosage: 320 MG, PRN
     Route: 042
     Dates: start: 20160810, end: 20160810
  122. RECOMBINANT HUMAN ERYTHROPOIETIN [Concomitant]
     Active Substance: ERYTHROPOIETIN
     Indication: PRODUCT USED FOR UNKNOWN INDICATION
     Dosage: 10000 IU, PRN
     Route: 042
     Dates: start: 20160812, end: 20160812
  123. RECOMBINANT HUMAN ERYTHROPOIETIN [Concomitant]
     Active Substance: ERYTHROPOIETIN
     Dosage: 9999 IU, PRN
     Route: 042
     Dates: start: 20160831, end: 20160831
  124. RECOMBINANT HUMAN ERYTHROPOIETIN [Concomitant]
     Active Substance: ERYTHROPOIETIN
     Dosage: 9999 IU, PRN
     Route: 042
     Dates: start: 20160918, end: 20160918
  125. CEPHAZOLINE SODIUM [Concomitant]
     Active Substance: CEFAZOLIN SODIUM
     Indication: PRODUCT USED FOR UNKNOWN INDICATION
     Dosage: 500 MG, PRN
     Route: 023
     Dates: start: 20160810, end: 20160810
  126. FUROSEMIDE. [Concomitant]
     Active Substance: FUROSEMIDE
     Dosage: 40 MG, PRN
     Route: 042
     Dates: start: 20160810, end: 20160810
  127. METHYLPREDNISOLONE. [Suspect]
     Active Substance: METHYLPREDNISOLONE
     Dosage: 500 MG, QD
     Route: 065
     Dates: start: 20160901, end: 20160902
  128. SODIUM CHLORIDE. [Concomitant]
     Active Substance: SODIUM CHLORIDE
     Indication: PRODUCT USED FOR UNKNOWN INDICATION
     Dosage: 500 ML, PRN
     Route: 042
     Dates: start: 20160810, end: 20160810
  129. GLUTATHIONE [Concomitant]
     Active Substance: GLUTATHIONE
     Indication: PROPHYLAXIS
     Dosage: 1200 MG, PRN
     Route: 042
     Dates: start: 20160810, end: 20160810
  130. BICYCLOL [Concomitant]
     Active Substance: BICYCLOL
     Dosage: 25 MG, TID
     Route: 048
     Dates: start: 20160927, end: 20160929
  131. SULFAMETOXAZOL [Concomitant]
     Active Substance: SULFAMETHOXAZOLE
     Indication: INFECTION PROPHYLAXIS
     Dosage: 2 DF, NOON OF TUESDAY AND FRIDAY
     Route: 048
     Dates: start: 20160929
  132. POTASSIUM CHLORIDE. [Concomitant]
     Active Substance: POTASSIUM CHLORIDE
     Indication: PRODUCT USED FOR UNKNOWN INDICATION
     Dosage: 1000 MG, TID
     Route: 048
     Dates: start: 20160824, end: 20160826
  133. ESOMEPRAZOLE MAGNESIUM. [Concomitant]
     Active Substance: ESOMEPRAZOLE MAGNESIUM
     Dosage: 40 MG, QD
     Route: 048
     Dates: start: 20160929
  134. SCOPOLAMINE HYDROBROMIDE. [Concomitant]
     Active Substance: SCOPOLAMINE HYDROBROMIDE
     Indication: PRODUCT USED FOR UNKNOWN INDICATION
     Dosage: 30 MCG, PRN
     Route: 030
     Dates: start: 20160809, end: 20160809
  135. HUMAN ALBUMIN [Concomitant]
     Active Substance: ALBUMIN HUMAN
     Indication: PRODUCT USED FOR UNKNOWN INDICATION
     Dosage: 10 G, PRN
     Route: 042
     Dates: start: 20160809, end: 20160809
  136. IRON SUCROSE [Concomitant]
     Active Substance: IRON SUCROSE
     Indication: PRODUCT USED FOR UNKNOWN INDICATION
     Dosage: 1 VIAL, PRN
     Route: 042
     Dates: start: 20160812, end: 20160812
  137. DOPAMINE HYDROCHLORIDE. [Concomitant]
     Active Substance: DOPAMINE HYDROCHLORIDE
     Dosage: 10 MG, QD
     Route: 042
     Dates: start: 20160810, end: 20160811
  138. DOPAMINE HYDROCHLORIDE. [Concomitant]
     Active Substance: DOPAMINE HYDROCHLORIDE
     Dosage: 10 MG, PRN
     Route: 042
     Dates: start: 20160905, end: 20160905
  139. RECOMBINANT HUMAN ERYTHROPOIETIN [Concomitant]
     Active Substance: ERYTHROPOIETIN
     Dosage: 9999 IU, PRN
     Route: 042
     Dates: start: 20160826, end: 20160826
  140. RECOMBINANT HUMAN ERYTHROPOIETIN [Concomitant]
     Active Substance: ERYTHROPOIETIN
     Dosage: 9999 IU, PRN
     Route: 042
     Dates: start: 20160906, end: 20160906
  141. RECOMBINANT HUMAN ERYTHROPOIETIN [Concomitant]
     Active Substance: ERYTHROPOIETIN
     Dosage: 9999 IU, PRN
     Route: 042
     Dates: start: 20160914, end: 20160914
  142. MUCOSOLVAN [Concomitant]
     Active Substance: AMBROXOL HYDROCHLORIDE
     Dosage: 15 MG, TID
     Route: 055
     Dates: start: 20160810, end: 20160906
  143. FUROSEMIDE. [Concomitant]
     Active Substance: FUROSEMIDE
     Dosage: 160 MG, PRN
     Route: 042
     Dates: start: 20160907, end: 20160907

REACTIONS (10)
  - Low density lipoprotein increased [Unknown]
  - Complications of transplanted kidney [Recovering/Resolving]
  - Blood cholesterol increased [Unknown]
  - Blood glucose increased [Unknown]
  - Anaemia [Recovering/Resolving]
  - Pneumonitis [Recovered/Resolved]
  - Incision site pain [Recovering/Resolving]
  - Lymphocyte count decreased [Unknown]
  - Pneumonia [Unknown]
  - Platelet count increased [Unknown]

NARRATIVE: CASE EVENT DATE: 20160810
